FAERS Safety Report 9776834 (Version 1)
Quarter: 2013Q4

REPORT INFORMATION
  Report Type: Report from Study
  Country: US (occurrence: US)
  Receive Date: 20131221
  Receipt Date: 20131221
  Transmission Date: 20140711
  Serious: Yes (Hospitalization)
  Sender: FDA-Public Use
  Company Number: PHEH2013US025869

PATIENT
  Age: 86 Year
  Sex: Female

DRUGS (9)
  1. TASIGNA [Suspect]
     Dosage: 200 MG, DAILY
     Route: 048
     Dates: start: 20130409, end: 20130920
  2. PLAVIX [Concomitant]
     Dosage: UNK
  3. PRAVACHOL [Concomitant]
     Dosage: UNK
  4. LIDODERM [Concomitant]
     Dosage: UNK
  5. ZETIA [Concomitant]
     Dosage: UNK
  6. TRICOR [Concomitant]
     Dosage: UNK
  7. COREG [Concomitant]
     Dosage: UNK
  8. ASPIRIN [Concomitant]
     Dosage: UNK
  9. IRON [Concomitant]
     Dosage: UNK

REACTIONS (1)
  - Gastrointestinal disorder [Unknown]
